FAERS Safety Report 9780093 (Version 1)
Quarter: 2013Q4

REPORT INFORMATION
  Report Type: Report from Study
  Country: US (occurrence: US)
  Receive Date: 20131223
  Receipt Date: 20131223
  Transmission Date: 20140711
  Serious: Yes (Hospitalization, Other)
  Sender: FDA-Public Use
  Company Number: US-ABBVIE-13P-163-1179851-00

PATIENT
  Sex: Male
  Weight: 123.94 kg

DRUGS (4)
  1. HUMIRA [Suspect]
     Indication: CROHN^S DISEASE
     Dates: start: 2008, end: 201309
  2. HUMIRA [Suspect]
     Dates: start: 20131109, end: 20131109
  3. HUMIRA [Suspect]
     Dates: start: 20131123, end: 20131123
  4. TYLENOL [Concomitant]
     Indication: PRODUCT USED FOR UNKNOWN INDICATION

REACTIONS (8)
  - Intestinal mass [Recovered/Resolved]
  - Cholelithiasis [Recovered/Resolved]
  - Intestinal perforation [Recovered/Resolved]
  - Abdominal discomfort [Recovered/Resolved]
  - Diarrhoea [Recovered/Resolved]
  - Abdominal pain [Recovered/Resolved]
  - Rectal abscess [Recovering/Resolving]
  - Injection site pain [Not Recovered/Not Resolved]
